FAERS Safety Report 12420223 (Version 1)
Quarter: 2016Q2

REPORT INFORMATION
  Report Type: Report from Study
  Country: NL (occurrence: NL)
  Receive Date: 20160531
  Receipt Date: 20160531
  Transmission Date: 20160815
  Serious: Yes (Other)
  Sender: FDA-Public Use
  Company Number: NL-AMGEN-NLDSP2016066752

PATIENT
  Age: 65 Year
  Sex: Female

DRUGS (4)
  1. CALCIUMCARBONAAT [Concomitant]
     Dosage: 500 MG, QD
     Dates: start: 20160127
  2. XGEVA [Suspect]
     Active Substance: DENOSUMAB
     Indication: PRODUCT USED FOR UNKNOWN INDICATION
     Dosage: 120 MG/1.7 ML, Q4WK
     Route: 058
     Dates: start: 20131017
  3. MACROGOL [Concomitant]
     Active Substance: POLYETHYLENE GLYCOLS
     Dosage: UNK, QD
     Dates: start: 20140409
  4. ANASTROZOL [Concomitant]
     Active Substance: ANASTROZOLE
     Dosage: UNK, QD
     Dates: start: 20140409

REACTIONS (6)
  - Breast cancer metastatic [Unknown]
  - Osteoarthritis [Unknown]
  - Vertigo [Unknown]
  - Diverticulitis [Unknown]
  - Bursitis [Unknown]
  - Oedema [Unknown]

NARRATIVE: CASE EVENT DATE: 20131106
